FAERS Safety Report 18799897 (Version 1)
Quarter: 2021Q1

REPORT INFORMATION
  Report Type: Spontaneous
  Country: US (occurrence: US)
  Receive Date: 20210128
  Receipt Date: 20210128
  Transmission Date: 20210419
  Serious: Yes (Death)
  Sender: FDA-Public Use
  Company Number: US-PFIZER INC-2021046402

PATIENT
  Age: 63 Year
  Sex: Male

DRUGS (2)
  1. TORISEL [Suspect]
     Active Substance: TEMSIROLIMUS
     Indication: RENAL CANCER
     Dosage: CYCLIC (FREQUENCY OF TREATMENT: D1, 15 Q (EVERY) 28 DAYS)
  2. TORISEL [Suspect]
     Active Substance: TEMSIROLIMUS
     Dosage: 25 MG

REACTIONS (3)
  - Death [Fatal]
  - Product use issue [Unknown]
  - Off label use [Unknown]
